FAERS Safety Report 13753682 (Version 1)
Quarter: 2017Q3

REPORT INFORMATION
  Report Type: Spontaneous
  Country: US (occurrence: US)
  Receive Date: 20170713
  Receipt Date: 20170713
  Transmission Date: 20171127
  Serious: Yes (Other)
  Sender: FDA-Public Use
  Company Number: US-VIFOR (INTERNATIONAL) INC.-VIT-2017-07556

PATIENT
  Age: 61 Year
  Sex: Female

DRUGS (16)
  1. LANTUS [Concomitant]
     Active Substance: INSULIN GLARGINE
  2. RENVELA [Concomitant]
     Active Substance: SEVELAMER CARBONATE
  3. SENNA LAXATIVE [Concomitant]
     Active Substance: SENNOSIDES
  4. VELTASSA [Suspect]
     Active Substance: PATIROMER
     Indication: CHRONIC KIDNEY DISEASE
     Route: 048
  5. DOCUSATE SODIUM. [Concomitant]
     Active Substance: DOCUSATE SODIUM
  6. AMLODIPINE BESILATE [Concomitant]
     Active Substance: AMLODIPINE BESYLATE
  7. ESCITALOPRAM OXALATE. [Concomitant]
     Active Substance: ESCITALOPRAM OXALATE
  8. NORCO [Concomitant]
     Active Substance: ACETAMINOPHEN\HYDROCODONE BITARTRATE
  9. NOVOLOG [Concomitant]
     Active Substance: INSULIN ASPART
  10. COLECALCIFEROL [Concomitant]
     Active Substance: CHOLECALCIFEROL
  11. ATORVASTATIN CALCIUM. [Concomitant]
     Active Substance: ATORVASTATIN CALCIUM
  12. GLUCAGON. [Concomitant]
     Active Substance: GLUCAGON
  13. METOCLOPRAMIDE HYDROCHLORIDE. [Concomitant]
     Active Substance: METOCLOPRAMIDE HYDROCHLORIDE
  14. OMEPRAZOLE. [Concomitant]
     Active Substance: OMEPRAZOLE
  15. VACCINIUM MACROCARPON [Concomitant]
     Active Substance: CRANBERRY
  16. DIALYVITE 800 PLUS D [Concomitant]

REACTIONS (2)
  - Off label use [Unknown]
  - Peripheral artery angioplasty [Unknown]

NARRATIVE: CASE EVENT DATE: 20170707
